FAERS Safety Report 17533772 (Version 1)
Quarter: 2020Q1

REPORT INFORMATION
  Report Type: Spontaneous
  Country: US (occurrence: US)
  Receive Date: 20200312
  Receipt Date: 20200312
  Transmission Date: 20200409
  Serious: No
  Sender: FDA-Public Use
  Company Number: US-009507513-2003USA001263

PATIENT
  Age: 40 Year
  Sex: Female

DRUGS (2)
  1. NUVARING [Suspect]
     Active Substance: ETHINYL ESTRADIOL\ETONOGESTREL
     Route: 067
  2. ETONOGESTREL (+) ETHINYL ESTRADIOL [Suspect]
     Active Substance: ETHINYL ESTRADIOL\ETONOGESTREL
     Dosage: 1 RING FOR 3 WEEKS
     Route: 067
     Dates: start: 20200207, end: 202002

REACTIONS (4)
  - Blood cholesterol abnormal [Unknown]
  - Device expulsion [Unknown]
  - Accidental underdose [Unknown]
  - Product quality issue [Unknown]

NARRATIVE: CASE EVENT DATE: 202002
